FAERS Safety Report 8572506-5 (Version None)
Quarter: 2012Q3

REPORT INFORMATION
  Report Type: 
  Country: None (occurrence: None)
  Receive Date: 20120806
  Receipt Date: 20120802
  Transmission Date: 20120928
  Serious: Yes (Hospitalization)
  Sender: FDA-Public Use
  Company Number: SE-ROCHE-1089022

PATIENT
  Age: 71 Year
  Sex: Male

DRUGS (2)
  1. AVASTIN [Suspect]
     Indication: PRODUCT USED FOR UNKNOWN INDICATION
     Dosage: SOLUTION FOR INFUSION 25 MG/ML
     Route: 031
     Dates: start: 20120301, end: 20120601
  2. AVASTIN [Suspect]
     Dosage: 0.05ML3 ML 3

REACTIONS (1)
  - MYOCARDIAL INFARCTION [None]
